FAERS Safety Report 7356643-9 (Version None)
Quarter: 2011Q1

REPORT INFORMATION
  Report Type: 
  Country: None (occurrence: None)
  Receive Date: 20110316
  Receipt Date: 20110307
  Transmission Date: 20110831
  Serious: Yes (Hospitalization, Other)
  Sender: FDA-Public Use
  Company Number: PHHY2010MX47044

PATIENT
  Sex: Female

DRUGS (7)
  1. ASPIRIN [Concomitant]
     Dosage: 1 TABLET DAILY
  2. GALVUS [Suspect]
     Indication: DIABETES MELLITUS
     Dosage: 1 DF, PER DAY
     Route: 048
     Dates: start: 20091101
  3. CO-DIOVAN [Suspect]
     Indication: HYPERTENSION
     Dosage: 1 TABLET (0.5 MG IN MORNING AND 0.5 MG IN AFTERNOON)
     Route: 048
     Dates: start: 20091101
  4. VIGAMOX [Concomitant]
     Indication: EYE DISORDER
     Dosage: UNK
  5. MIRACIL [Concomitant]
     Indication: EYE DISORDER
  6. PREFRIN [Concomitant]
     Indication: EYE DISORDER
     Dosage: UNK
  7. MAVIBLIN [Concomitant]
     Dosage: 3 TABLETS PER DAY

REACTIONS (2)
  - CATARACT [None]
  - DIABETES MELLITUS [None]
